FAERS Safety Report 6411971-6 (Version None)
Quarter: 2009Q4

REPORT INFORMATION
  Report Type: 
  Country: None (occurrence: None)
  Receive Date: 20091023
  Receipt Date: 20091016
  Transmission Date: 20100525
  Serious: Yes (Hospitalization)
  Sender: FDA-Public Use
  Company Number: IT-ASTRAZENECA-2009SE10444

PATIENT
  Age: 27506 Day
  Sex: Male

DRUGS (7)
  1. TENORMIN [Suspect]
     Indication: ISCHAEMIC CARDIOMYOPATHY
     Route: 065
     Dates: start: 20080818, end: 20090818
  2. ACETYLSALICYLIC ACID [Concomitant]
  3. PRAVASELECT [Concomitant]
  4. MONOCINQUE [Concomitant]
  5. ESOPRAL [Concomitant]
  6. NORVASC [Concomitant]
  7. PLAVIX [Concomitant]

REACTIONS (3)
  - BRADYCARDIA [None]
  - HYPERHIDROSIS [None]
  - VERTIGO [None]
